FAERS Safety Report 25071482 (Version 1)
Quarter: 2025Q1

REPORT INFORMATION
  Report Type: Report from Study
  Country: US (occurrence: US)
  Receive Date: 20250312
  Receipt Date: 20250312
  Transmission Date: 20250409
  Serious: Yes (Other)
  Sender: ABBVIE
  Company Number: US-ABBVIE-6165853

PATIENT
  Sex: Female

DRUGS (1)
  1. HUMIRA [Suspect]
     Active Substance: ADALIMUMAB
     Indication: Product used for unknown indication
     Route: 058

REACTIONS (7)
  - Hip surgery [Unknown]
  - Fall [Unknown]
  - Musculoskeletal stiffness [Unknown]
  - Neck surgery [Unknown]
  - Vertebral body replacement [Unknown]
  - Knee operation [Unknown]
  - Shoulder operation [Unknown]
